FAERS Safety Report 7012404-1 (Version None)
Quarter: 2010Q3

REPORT INFORMATION
  Report Type: 
  Country: None (occurrence: None)
  Receive Date: 20100913
  Receipt Date: 20090806
  Transmission Date: 20110219
  Serious: Yes (Other)
  Sender: FDA-Public Use
  Company Number: 2009SP019139

PATIENT
  Sex: Female
  Weight: 173.7277 kg

DRUGS (2)
  1. IMPLANON [Suspect]
     Indication: PRODUCT USED FOR UNKNOWN INDICATION
     Dosage: SBDE
     Dates: start: 20090129
  2. DEPO PROVERA /00115201/ [Concomitant]

REACTIONS (1)
  - MENORRHAGIA [None]
